FAERS Safety Report 4752401-X (Version None)
Quarter: 2005Q3

REPORT INFORMATION
  Report Type: 
  Country: None (occurrence: None)
  Receive Date: 20050823
  Receipt Date: 20050811
  Transmission Date: 20060218
  Serious: Yes (Hospitalization, Other)
  Sender: FDA-Public Use
  Company Number: 2005104648

PATIENT
  Age: 59 Year
  Sex: Female

DRUGS (7)
  1. LYRICA [Suspect]
     Indication: NEUROPATHY PERIPHERAL
     Dosage: 150 MCG (75 MG, 2 IN 1 D), ORAL
     Route: 048
     Dates: start: 20050711
  2. AVANZA (MIRTAZAPINE) [Concomitant]
  3. NEURONTIN [Concomitant]
  4. SERETIDE (FLUTICASONE PROPIONATE, SALMETEROL XINAFOATE [Concomitant]
  5. SPIRIVA [Concomitant]
  6. CLOFEN (BACLOFEN) [Concomitant]
  7. METHADONE HCL [Concomitant]

REACTIONS (11)
  - DEHYDRATION [None]
  - DEPRESSED LEVEL OF CONSCIOUSNESS [None]
  - DIABETES INSIPIDUS [None]
  - HAEMATURIA [None]
  - HYPERTONIA [None]
  - HYPOKALAEMIA [None]
  - HYPOMAGNESAEMIA [None]
  - HYPOTHERMIA [None]
  - MUSCLE DISORDER [None]
  - OVERDOSE [None]
  - PNEUMOTHORAX [None]
